FAERS Safety Report 19280023 (Version 1)
Quarter: 2021Q2

REPORT INFORMATION
  Report Type: Spontaneous
  Country: US (occurrence: US)
  Receive Date: 20210520
  Receipt Date: 20210520
  Transmission Date: 20210717
  Serious: No
  Sender: FDA-Public Use
  Company Number: US-HORIZON THERAPEUTICS-HZN-2021-000879

PATIENT
  Sex: Female

DRUGS (3)
  1. TEPEZZA [Suspect]
     Active Substance: TEPROTUMUMAB-TRBW
     Indication: ENDOCRINE OPHTHALMOPATHY
     Dosage: UNK
     Route: 042
     Dates: start: 20200406, end: 202010
  2. SELENIUM [Concomitant]
     Active Substance: SELENIUM
     Indication: ENDOCRINE OPHTHALMOPATHY
     Dosage: 100 UG, BID
     Route: 065
  3. METHIMAZOLE. [Concomitant]
     Active Substance: METHIMAZOLE
     Indication: BASEDOW^S DISEASE
     Dosage: UNK UG
     Route: 065

REACTIONS (1)
  - Muscle spasms [Unknown]
